FAERS Safety Report 10247385 (Version 1)
Quarter: 2014Q2

REPORT INFORMATION
  Report Type: Spontaneous
  Country: US (occurrence: US)
  Receive Date: 20140619
  Receipt Date: 20140619
  Transmission Date: 20141212
  Serious: No
  Sender: FDA-Public Use
  Company Number: US-PFIZER INC-2014164263

PATIENT
  Age: 75 Year
  Sex: Female
  Weight: 73.7 kg

DRUGS (2)
  1. ZYVOX [Suspect]
     Indication: KIDNEY INFECTION
     Dosage: 600 MG, 2X/DAY
     Dates: start: 201406, end: 20140606
  2. LASIX [Concomitant]
     Indication: FLUID RETENTION
     Dosage: UNK

REACTIONS (4)
  - Swelling [Unknown]
  - Rash [Unknown]
  - Dyspnoea [Unknown]
  - Pruritus [Unknown]
